FAERS Safety Report 6531815-1 (Version None)
Quarter: 2010Q1

REPORT INFORMATION
  Report Type: 
  Country: None (occurrence: None)
  Receive Date: 20100108
  Receipt Date: 20100105
  Transmission Date: 20100710
  Serious: Yes (Death)
  Sender: FDA-Public Use
  Company Number: US-CELGENEUS-163-21880-09122256

PATIENT
  Sex: Female

DRUGS (1)
  1. REVLIMID [Suspect]
     Indication: MULTIPLE MYELOMA
     Route: 048
     Dates: start: 20090101, end: 20090101

REACTIONS (6)
  - ASTHENIA [None]
  - BLOOD COUNT ABNORMAL [None]
  - DEAFNESS [None]
  - DYSGEUSIA [None]
  - NEUROPATHY PERIPHERAL [None]
  - RENAL FAILURE [None]
